FAERS Safety Report 14769090 (Version 1)
Quarter: 2018Q2

REPORT INFORMATION
  Report Type: Spontaneous
  Country: US (occurrence: US)
  Receive Date: 20180411
  Receipt Date: 20180411
  Transmission Date: 20180711
  Serious: No
  Sender: FDA-Public Use
  Company Number: None

PATIENT
  Age: 35 Year
  Sex: Male

DRUGS (1)
  1. CEFTRIAXONE. [Suspect]
     Active Substance: CEFTRIAXONE
     Indication: UPPER RESPIRATORY TRACT INFECTION
     Dates: start: 20180326, end: 20180326

REACTIONS (3)
  - Erythema multiforme [None]
  - Tachycardia [None]
  - Urticaria [None]

NARRATIVE: CASE EVENT DATE: 20180326
